FAERS Safety Report 8127518-2 (Version None)
Quarter: 2012Q1

REPORT INFORMATION
  Report Type: 
  Country: None (occurrence: None)
  Receive Date: 20120210
  Receipt Date: 20120206
  Transmission Date: 20120608
  Serious: Yes (Hospitalization)
  Sender: FDA-Public Use
  Company Number: US-PFIZER INC-2011294107

PATIENT
  Sex: Male
  Weight: 74.83 kg

DRUGS (1)
  1. ANBESOL [Suspect]
     Indication: TOOTHACHE
     Dosage: UNK, DAILY
     Dates: start: 20111101, end: 20111101

REACTIONS (2)
  - HYPOAESTHESIA [None]
  - MALAISE [None]
